FAERS Safety Report 9293936 (Version 2)
Quarter: 2014Q4

REPORT INFORMATION
  Report Type: Spontaneous
  Country: US (occurrence: None)
  Receive Date: 20121221
  Receipt Date: 20141224
  Transmission Date: 20150529
  Serious: Yes (Other)
  Sender: FDA-Public Use
  Company Number: PHEH2011US008654

PATIENT
  Age: 11 Year
  Sex: Female

DRUGS (3)
  1. FOCALIN XR [Suspect]
     Active Substance: DEXMETHYLPHENIDATE HYDROCHLORIDE
     Route: 048
     Dates: start: 20111102
  2. MELATONIN (MELATONIN) [Concomitant]
  3. DEXMETHYLPHENIDATE HYDROCHLORIDE. [Suspect]
     Active Substance: DEXMETHYLPHENIDATE HYDROCHLORIDE
     Route: 048

REACTIONS (6)
  - Abnormal behaviour [None]
  - Hallucination, visual [None]
  - Drug prescribing error [None]
  - Insomnia [None]
  - Pigmentation disorder [None]
  - Hallucination [None]
